FAERS Safety Report 13122520 (Version 1)
Quarter: 2017Q1

REPORT INFORMATION
  Report Type: Spontaneous
  Country: BR (occurrence: BR)
  Receive Date: 20170117
  Receipt Date: 20170117
  Transmission Date: 20170428
  Serious: Yes (Other)
  Sender: FDA-Public Use
  Company Number: BR-ALEXION-A201700216

PATIENT
  Age: 3 Year
  Sex: Male

DRUGS (2)
  1. SOLIRIS [Suspect]
     Active Substance: ECULIZUMAB
     Dosage: 300 MG, UNK
     Route: 042
     Dates: start: 20140719
  2. SOLIRIS [Suspect]
     Active Substance: ECULIZUMAB
     Indication: PRODUCT USED FOR UNKNOWN INDICATION
     Dosage: 600 MG, SINGLE
     Route: 042
     Dates: start: 20140712, end: 20140712

REACTIONS (7)
  - Red blood cells urine positive [Unknown]
  - Eye pain [Recovered/Resolved]
  - Red blood cell sedimentation rate abnormal [Unknown]
  - Urine protein/creatinine ratio [Unknown]
  - Urine abnormality [Unknown]
  - Protein urine present [Unknown]
  - Pyrexia [Unknown]

NARRATIVE: CASE EVENT DATE: 20170105
